FAERS Safety Report 7003260-6 (Version None)
Quarter: 2010Q3

REPORT INFORMATION
  Report Type: 
  Country: None (occurrence: None)
  Receive Date: 20100920
  Receipt Date: 20100910
  Transmission Date: 20110219
  Serious: Yes (Hospitalization, Other)
  Sender: FDA-Public Use
  Company Number: DE-PFIZER INC-2010101400

PATIENT
  Sex: Male

DRUGS (4)
  1. LYRICA [Suspect]
     Indication: NEURALGIA
     Dosage: 100 MG, 2X/DAY
     Route: 048
     Dates: start: 20100901
  2. LYRICA [Suspect]
     Dosage: 75 MG, UNK
     Route: 048
  3. OXYCODONE HYDROCHLORIDE [Suspect]
     Dosage: 20 MG, 1X/DAY (HALF OF 40 MG)
     Dates: start: 20100901
  4. NOVAMINSULFON ^BRAUN^ [Suspect]
     Dosage: 500 MG, 2X/DAY
     Dates: start: 20100901

REACTIONS (5)
  - DIZZINESS [None]
  - DRUG EFFECT DECREASED [None]
  - INCONTINENCE [None]
  - URETHRAL PAIN [None]
  - VISION BLURRED [None]
